FAERS Safety Report 9642397 (Version 2)
Quarter: 2013Q4

REPORT INFORMATION
  Report Type: Spontaneous
  Country: GB (occurrence: GB)
  Receive Date: 20131024
  Receipt Date: 20131024
  Transmission Date: 20140711
  Serious: Yes (Other)
  Sender: FDA-Public Use
  Company Number: GB-009507513-1109GBR00050

PATIENT
  Age: 76 Year
  Sex: Female
  Weight: 67 kg

DRUGS (12)
  1. SIMVASTATIN [Suspect]
     Route: 048
     Dates: start: 20110901
  2. SIMVASTATIN [Suspect]
     Dosage: UNK
     Route: 048
     Dates: start: 20110725, end: 20110822
  3. BECLOMETHASONE DIPROPIONATE [Concomitant]
     Dates: start: 20110614
  4. CALCICHEW D3 [Concomitant]
     Dates: start: 20110519
  5. DOCUSATE SODIUM [Concomitant]
     Dates: start: 20110519
  6. GABAPENTIN [Concomitant]
     Dates: start: 20110519
  7. HYPROMELLOSE [Concomitant]
     Dosage: UNK
     Dates: start: 20110519
  8. MEPTAZINOL [Concomitant]
     Dates: start: 20110815
  9. OMEPRAZOLE [Concomitant]
     Route: 048
     Dates: start: 20110519
  10. RAMIPRIL [Concomitant]
     Dates: start: 20110519
  11. SLOZEM [Concomitant]
     Dates: start: 20110519
  12. ZOPICLONE [Concomitant]
     Dates: start: 20110519

REACTIONS (1)
  - Contusion [Recovering/Resolving]
